FAERS Safety Report 7246149-X (Version None)
Quarter: 2011Q1

REPORT INFORMATION
  Report Type: 
  Country: None (occurrence: None)
  Receive Date: 20110126
  Receipt Date: 20110119
  Transmission Date: 20110831
  Serious: Yes (Other)
  Sender: FDA-Public Use
  Company Number: A0908774A

PATIENT
  Sex: Female

DRUGS (1)
  1. PAXIL [Suspect]
     Indication: DEPRESSION
     Route: 048
     Dates: start: 19980201, end: 20081201

REACTIONS (9)
  - IRRITABILITY [None]
  - WEIGHT INCREASED [None]
  - ALCOHOLISM [None]
  - SUICIDE ATTEMPT [None]
  - NAUSEA [None]
  - FOOD CRAVING [None]
  - PARAESTHESIA [None]
  - WITHDRAWAL SYNDROME [None]
  - TREMOR [None]
